FAERS Safety Report 15318386 (Version 1)
Quarter: 2018Q3

REPORT INFORMATION
  Report Type: Spontaneous
  Country: US (occurrence: US)
  Receive Date: 20180817
  Receipt Date: 20180817
  Transmission Date: 20181010
  Serious: Yes (Other)
  Sender: FDA-Public Use
  Company Number: None

PATIENT
  Age: 49 Year
  Sex: Female
  Weight: 58.05 kg

DRUGS (2)
  1. LEVOTHYROXINE. [Suspect]
     Active Substance: LEVOTHYROXINE
     Indication: THYROID DISORDER
     Dosage: ?          QUANTITY:1 TABLET(S);?
     Route: 048
     Dates: start: 20180514, end: 20180621
  2. XANAX [Concomitant]
     Active Substance: ALPRAZOLAM

REACTIONS (6)
  - Anger [None]
  - Loss of personal independence in daily activities [None]
  - Feeling abnormal [None]
  - Depression [None]
  - Thyroid function test abnormal [None]
  - Irritability [None]

NARRATIVE: CASE EVENT DATE: 20180514
